FAERS Safety Report 25936652 (Version 2)
Quarter: 2025Q4

REPORT INFORMATION
  Report Type: Spontaneous
  Country: JP (occurrence: JP)
  Receive Date: 20251017
  Receipt Date: 20251106
  Transmission Date: 20260117
  Serious: Yes (Death, Other)
  Sender: BAYER HEALTHCARE PHARMACEUTICALS INC.
  Company Number: JP-BAYER-2025A136381

PATIENT
  Age: 59 Year
  Sex: Male

DRUGS (2)
  1. IOPROMIDE [Suspect]
     Active Substance: IOPROMIDE
     Indication: Computerised tomogram
     Dosage: 100 ML, ONCE
     Route: 042
     Dates: start: 20251005, end: 20251005
  2. IOPROMIDE [Suspect]
     Active Substance: IOPROMIDE
     Indication: Circulatory collapse

REACTIONS (8)
  - Vomiting [Fatal]
  - Asphyxia [Fatal]
  - Oxygen saturation decreased [None]
  - Bradycardia [None]
  - Cardio-respiratory arrest [None]
  - Aspiration [None]
  - Pneumonia aspiration [None]
  - Feeling abnormal [None]

NARRATIVE: CASE EVENT DATE: 20251005
